FAERS Safety Report 16007603 (Version 1)
Quarter: 2019Q1

REPORT INFORMATION
  Report Type: Spontaneous
  Country: GB (occurrence: GB)
  Receive Date: 20190226
  Receipt Date: 20190226
  Transmission Date: 20190418
  Serious: Yes (Disabling, Other)
  Sender: FDA-Public Use
  Company Number: GB-TEVA-2019-GB-1015363

PATIENT
  Age: 68 Year
  Sex: Male

DRUGS (7)
  1. THIAMINE. [Concomitant]
     Active Substance: THIAMINE
  2. RISPERIDONE. [Suspect]
     Active Substance: RISPERIDONE
     Indication: NEUROPSYCHIATRIC SYMPTOMS
     Route: 048
  3. HALOPERIDOL. [Concomitant]
     Active Substance: HALOPERIDOL
  4. FOLIC ACID. [Concomitant]
     Active Substance: FOLIC ACID
  5. COLECALCIFEROL [Concomitant]
     Active Substance: CHOLECALCIFEROL
  6. VITAMIN B12 [Concomitant]
     Active Substance: CYANOCOBALAMIN
  7. PARACETAMOL [Concomitant]
     Active Substance: ACETAMINOPHEN

REACTIONS (6)
  - Salivary hypersecretion [Unknown]
  - Muscle rigidity [Unknown]
  - Hypotension [Recovered/Resolved]
  - Neuroleptic malignant syndrome [Recovering/Resolving]
  - Hyperthermia [Recovered/Resolved]
  - Arthropathy [Unknown]

NARRATIVE: CASE EVENT DATE: 20190111
